FAERS Safety Report 6865204-7 (Version None)
Quarter: 2010Q3

REPORT INFORMATION
  Report Type: 
  Country: None (occurrence: None)
  Receive Date: 20100721
  Receipt Date: 20080606
  Transmission Date: 20110219
  Serious: No
  Sender: FDA-Public Use
  Company Number: US-PFIZER INC-2008032582

PATIENT
  Sex: Male
  Weight: 54.43 kg

DRUGS (29)
  1. CHANTIX [Suspect]
     Indication: SMOKING CESSATION THERAPY
     Route: 048
     Dates: start: 20071201
  2. BENADRYL [Concomitant]
  3. LISINOPRIL [Concomitant]
  4. METFORMIN [Concomitant]
     Indication: DIABETES MELLITUS
  5. FIBERCON [Concomitant]
  6. ZOLPIDEM TARTRATE [Concomitant]
  7. DOCUSATE SODIUM [Concomitant]
  8. NADOLOL [Concomitant]
  9. ACETYLSALICYLIC ACID [Concomitant]
  10. LACTULOSE [Concomitant]
  11. MULTI-VITAMINS [Concomitant]
  12. RANITIDINE [Concomitant]
  13. VICODIN [Concomitant]
  14. ACTONEL [Concomitant]
  15. LIPITOR [Concomitant]
  16. NITROGLYCERIN [Concomitant]
  17. FOLIC ACID [Concomitant]
  18. SPIRIVA [Concomitant]
  19. LIDOCAINE [Concomitant]
  20. ALBUTEROL [Concomitant]
  21. ACYCLOVIR [Concomitant]
  22. SIMVASTATIN [Concomitant]
  23. INSULIN LISPRO [Concomitant]
  24. FLOVENT [Concomitant]
  25. INSULIN GLARGINE [Concomitant]
  26. ALL OTHER THERAPEUTIC PRODUCTS [Concomitant]
  27. ISOPHANE INSULIN [Concomitant]
  28. OXYCODONE [Concomitant]
  29. ALEVE (CAPLET) [Concomitant]

REACTIONS (5)
  - DRUG INEFFECTIVE [None]
  - HYPERSOMNIA [None]
  - INCORRECT DOSE ADMINISTERED [None]
  - MOUTH ULCERATION [None]
  - WRONG TECHNIQUE IN DRUG USAGE PROCESS [None]
